FAERS Safety Report 9343196 (Version 1)
Quarter: 2013Q2

REPORT INFORMATION
  Report Type: Report from Study
  Country: US (occurrence: US)
  Receive Date: 20130611
  Receipt Date: 20130611
  Transmission Date: 20140414
  Serious: Yes (Hospitalization)
  Sender: FDA-Public Use
  Company Number: US-US-EMD SERONO, INC.-7204852

PATIENT
  Age: 48 Year
  Sex: Female

DRUGS (4)
  1. REBIF [Suspect]
     Indication: MULTIPLE SCLEROSIS
     Dates: start: 20130321, end: 20130408
  2. REBIF [Suspect]
     Route: 058
     Dates: start: 20130408
  3. IBUPROFEN [Concomitant]
     Indication: PREMEDICATION
  4. ASPIRIN                            /00002701/ [Concomitant]
     Indication: PREMEDICATION

REACTIONS (9)
  - Primary progressive multiple sclerosis [Not Recovered/Not Resolved]
  - Multiple sclerosis relapse [Not Recovered/Not Resolved]
  - Crying [Recovering/Resolving]
  - Feeling of despair [Recovering/Resolving]
  - Chest discomfort [Not Recovered/Not Resolved]
  - Visual impairment [Not Recovered/Not Resolved]
  - Back pain [Not Recovered/Not Resolved]
  - Pyrexia [Recovered/Resolved]
  - Injection site nodule [Not Recovered/Not Resolved]
